FAERS Safety Report 4339320-8 (Version None)
Quarter: 2004Q2

REPORT INFORMATION
  Report Type: 
  Country: None (occurrence: None)
  Receive Date: 20040412
  Receipt Date: 19970110
  Transmission Date: 20050107
  Serious: Yes (Death)
  Sender: FDA-Public Use
  Company Number: WAES 0404USA00823

PATIENT
  Age: 18 Day
  Sex: Female

DRUGS (9)
  1. INDOCIN I.V. [Suspect]
     Indication: PATENT DUCTUS ARTERIOSUS
     Dosage: 180 MICROGM/DAILY, IV
     Route: 042
     Dates: start: 19950422, end: 19950423
  2. INDOCIN I.V. [Suspect]
     Indication: PATENT DUCTUS ARTERIOSUS
     Dosage: 180 MICROGM/DAILY, IV
     Route: 042
     Dates: start: 19950427, end: 19950428
  3. AMPICILLIN SODIUM [Concomitant]
  4. DOPAMINE HCL [Concomitant]
  5. FAMOTIDINE [Concomitant]
  6. FOSFOMYCIN SODIUM [Concomitant]
  7. PHENOBARBITAL SODIUM [Concomitant]
  8. PIPERACILLIN SODIUM [Concomitant]
  9. SOYBEAN [Concomitant]

REACTIONS (7)
  - CHRONIC RESPIRATORY DISEASE [None]
  - GENERAL PHYSICAL HEALTH DETERIORATION [None]
  - HYPOXIA [None]
  - LUNG DISORDER [None]
  - NECROTISING COLITIS [None]
  - SEPSIS [None]
  - URINE OUTPUT DECREASED [None]
